FAERS Safety Report 9800081 (Version 3)
Quarter: 2015Q3

REPORT INFORMATION
  Report Type: Spontaneous
  Country: US (occurrence: US)
  Receive Date: 20140106
  Receipt Date: 20150806
  Transmission Date: 20151125
  Serious: No
  Sender: FDA-Public Use
  Company Number: US-GILEAD-2010-0030491

PATIENT
  Age: 92 Year
  Sex: Male

DRUGS (12)
  1. WARFARIN [Concomitant]
     Active Substance: WARFARIN
  2. FLOMAX [Concomitant]
     Active Substance: TAMSULOSIN HYDROCHLORIDE
  3. LETAIRIS [Suspect]
     Active Substance: AMBRISENTAN
     Indication: PULMONARY HYPERTENSION
     Route: 048
     Dates: start: 20100525
  4. LASIX [Concomitant]
     Active Substance: FUROSEMIDE
  5. METOPROLOL ER [Concomitant]
     Active Substance: METOPROLOL SUCCINATE
  6. FINASTERIDE. [Concomitant]
     Active Substance: FINASTERIDE
  7. METOLAZONE. [Concomitant]
     Active Substance: METOLAZONE
  8. ALLOPURINOL. [Concomitant]
     Active Substance: ALLOPURINOL
  9. COLACE [Concomitant]
     Active Substance: DOCUSATE SODIUM
  10. ASA [Concomitant]
     Active Substance: ASPIRIN
  11. TADALAFIL [Concomitant]
     Active Substance: TADALAFIL
  12. GLIPIZIDE. [Concomitant]
     Active Substance: GLIPIZIDE

REACTIONS (1)
  - Hypotension [Not Recovered/Not Resolved]

NARRATIVE: CASE EVENT DATE: 20100714
